FAERS Safety Report 5927522-6 (Version None)
Quarter: 2008Q4

REPORT INFORMATION
  Report Type: 
  Country: None (occurrence: None)
  Receive Date: 20081023
  Receipt Date: 20081016
  Transmission Date: 20090506
  Serious: Yes (Death, Hospitalization)
  Sender: FDA-Public Use
  Company Number: IT-ROCHE-588115

PATIENT
  Sex: Male
  Weight: 65 kg

DRUGS (5)
  1. CAPECITABINE [Suspect]
     Dosage: FREQUENCY D1-D14 PER 21 DAY
     Route: 048
     Dates: start: 20080806, end: 20080923
  2. BEVACIZUMAB [Suspect]
     Route: 042
     Dates: start: 20080806, end: 20080923
  3. OXALIPLATIN [Suspect]
     Route: 042
     Dates: start: 20080806, end: 20080923
  4. OMNIC [Concomitant]
     Dosage: DOSE REPORTED AS 1 CP
     Dates: start: 20060101, end: 20081012
  5. LIMPIDEX [Concomitant]
     Dates: start: 20080826, end: 20081012

REACTIONS (2)
  - DYSPNOEA [None]
  - PNEUMONIA [None]
